FAERS Safety Report 25661579 (Version 1)
Quarter: 2025Q3

REPORT INFORMATION
  Report Type: Spontaneous
  Country: TH (occurrence: TH)
  Receive Date: 20250808
  Receipt Date: 20250808
  Transmission Date: 20251020
  Serious: Yes (Other)
  Sender: MYLAN
  Company Number: TH-MYLANLABS-2025M1066715

PATIENT
  Age: 35 Year
  Sex: Female

DRUGS (1)
  1. VENLAFAXINE HYDROCHLORIDE [Suspect]
     Active Substance: VENLAFAXINE HYDROCHLORIDE
     Indication: Product used for unknown indication
     Dosage: 37.5 MILLIGRAM, QD (ONCE DAILY)
     Dates: start: 202506

REACTIONS (2)
  - Syncope [Recovered/Resolved]
  - Tongue biting [Recovered/Resolved]
